FAERS Safety Report 20318361 (Version 2)
Quarter: 2022Q1

REPORT INFORMATION
  Report Type: Spontaneous
  Country: US (occurrence: US)
  Receive Date: 20220110
  Receipt Date: 20220118
  Transmission Date: 20220423
  Serious: No
  Sender: FDA-Public Use
  Company Number: US-PFIZER INC-2021591696

PATIENT
  Age: 43 Year
  Sex: Female

DRUGS (1)
  1. XELJANZ XR [Suspect]
     Active Substance: TOFACITINIB CITRATE
     Indication: Psoriatic arthropathy
     Dosage: 11 MG, DAILY
     Route: 048
     Dates: start: 20210219

REACTIONS (7)
  - Musculoskeletal stiffness [Unknown]
  - Trigger finger [Unknown]
  - Pain [Unknown]
  - Joint dislocation [Unknown]
  - Tendon injury [Unknown]
  - Headache [Unknown]
  - Diarrhoea [Unknown]
